FAERS Safety Report 9564880 (Version 4)
Quarter: 2014Q2

REPORT INFORMATION
  Report Type: Spontaneous
  Country: JP (occurrence: JP)
  Receive Date: 20130930
  Receipt Date: 20140416
  Transmission Date: 20141212
  Serious: Yes (Death)
  Sender: FDA-Public Use
  Company Number: JP-PFIZER INC-2013276645

PATIENT
  Age: 83 Year
  Sex: Female
  Weight: 55 kg

DRUGS (10)
  1. NOVASTAN [Suspect]
     Indication: HEPARIN-INDUCED THROMBOCYTOPENIA
     Dosage: 0.7 MICROG/KG/MIN
     Route: 041
     Dates: start: 20130823, end: 20130825
  2. NOVASTAN [Suspect]
     Dosage: UNK
     Route: 041
     Dates: start: 20130826, end: 20130907
  3. HEPARIN SODIUM [Concomitant]
     Indication: ANGINA UNSTABLE
     Dosage: 10000/DAY
     Route: 042
     Dates: start: 20130814, end: 20130823
  4. HEPARIN SODIUM [Concomitant]
     Indication: CHEST PAIN
  5. HEPARIN SODIUM [Concomitant]
     Indication: MYOCARDIAL INFARCTION
  6. FRANDOL [Concomitant]
     Dosage: 1 SHEET
     Route: 061
     Dates: start: 20130814, end: 20130907
  7. ARICEPT [Concomitant]
     Dosage: 5 MG, UNK
     Route: 048
     Dates: start: 20130814, end: 20130825
  8. PENTCILLIN [Concomitant]
     Indication: PROPHYLAXIS
     Dosage: 2 GM, UNK
     Route: 042
     Dates: start: 20130817, end: 20130907
  9. WARFARIN [Concomitant]
     Dosage: 2 MG, UNK
     Route: 048
     Dates: start: 20130823, end: 20130824
  10. SOLU-MEDROL [Concomitant]
     Dosage: 1 GM, UNK
     Route: 042
     Dates: start: 20130823, end: 20130825

REACTIONS (4)
  - Renal failure acute [Fatal]
  - Thrombotic thrombocytopenic purpura [Fatal]
  - Activated partial thromboplastin time prolonged [Unknown]
  - Drug ineffective [Unknown]
